FAERS Safety Report 4482186-6 (Version None)
Quarter: 2004Q4

REPORT INFORMATION
  Report Type: 
  Country: None (occurrence: None)
  Receive Date: 20041022
  Receipt Date: 20040917
  Transmission Date: 20050328
  Serious: Yes (Other)
  Sender: FDA-Public Use
  Company Number: PHNU2004DE03259

PATIENT
  Age: 15 Year
  Sex: Male
  Weight: 70 kg

DRUGS (3)
  1. SANDIMMUNE [Suspect]
     Indication: UVEITIS
     Dosage: 200 MG/DAY
     Route: 048
     Dates: start: 20040810
  2. MOBIC [Concomitant]
  3. DIAMOX [Concomitant]

REACTIONS (2)
  - CEREBRAL VENOUS THROMBOSIS [None]
  - HEADACHE [None]
